FAERS Safety Report 14571142 (Version 1)
Quarter: 2018Q1

REPORT INFORMATION
  Report Type: Spontaneous
  Country: DK (occurrence: DK)
  Receive Date: 20180226
  Receipt Date: 20180226
  Transmission Date: 20180509
  Serious: Yes (Other)
  Sender: FDA-Public Use
  Company Number: PHHY2017DK185836

PATIENT
  Sex: Female

DRUGS (2)
  1. L-ARGININE [Suspect]
     Active Substance: ARGININE
     Indication: EPILEPSY
     Dosage: UNK
     Route: 065
  2. LEVETIRACETAM. [Suspect]
     Active Substance: LEVETIRACETAM
     Indication: EPILEPSY
     Dosage: UNK
     Route: 065

REACTIONS (2)
  - Generalised tonic-clonic seizure [Unknown]
  - Psychotic disorder [Recovered/Resolved]
